FAERS Safety Report 5795430-X (Version None)
Quarter: 2008Q2

REPORT INFORMATION
  Report Type: 
  Country: None (occurrence: None)
  Receive Date: 20080630
  Receipt Date: 20080619
  Transmission Date: 20081010
  Serious: Yes (Other)
  Sender: FDA-Public Use
  Company Number: US-PFIZER INC-2007074106

PATIENT
  Sex: Female
  Weight: 55.8 kg

DRUGS (13)
  1. CHANTIX [Suspect]
     Indication: SMOKING CESSATION THERAPY
  2. ATIVAN [Concomitant]
  3. SIMVASTATIN [Concomitant]
  4. PREVACID [Concomitant]
  5. DIAZEPAM [Concomitant]
  6. PRAVASTATIN [Concomitant]
  7. FOSAMAX [Concomitant]
  8. TEMAZEPAM [Concomitant]
  9. VICODIN [Concomitant]
  10. CENTRUM SILVER [Concomitant]
  11. ALL OTHER THERAPEUTIC PRODUCTS [Concomitant]
  12. MINERAL OIL EMULSION [Concomitant]
  13. VITAMIN D [Concomitant]

REACTIONS (5)
  - CONFUSIONAL STATE [None]
  - CONSTIPATION [None]
  - DISORIENTATION [None]
  - DISTURBANCE IN ATTENTION [None]
  - RECTAL HAEMORRHAGE [None]
